FAERS Safety Report 14982425 (Version 1)
Quarter: 2018Q2

REPORT INFORMATION
  Report Type: Spontaneous
  Country: US (occurrence: US)
  Receive Date: 20180607
  Receipt Date: 20180607
  Transmission Date: 20180711
  Serious: No
  Sender: FDA-Public Use
  Company Number: US-PFIZER INC-2018231236

PATIENT
  Age: 36 Year
  Sex: Female
  Weight: 65.77 kg

DRUGS (4)
  1. VYVANSE [Concomitant]
     Active Substance: LISDEXAMFETAMINE DIMESYLATE
     Dosage: 30 MG
  2. VALTREX [Concomitant]
     Active Substance: VALACYCLOVIR HYDROCHLORIDE
     Dosage: UNK
  3. PRISTIQ EXTENDED-RELEASE [Suspect]
     Active Substance: DESVENLAFAXINE SUCCINATE
     Indication: DEPRESSION
     Dosage: UNK
  4. SPIRONOLACTONE. [Concomitant]
     Active Substance: SPIRONOLACTONE
     Dosage: UNK

REACTIONS (7)
  - Hypertension [Unknown]
  - Malaise [Recovering/Resolving]
  - Autoscopy [Unknown]
  - Nervousness [Unknown]
  - Bronchitis [Unknown]
  - Insomnia [Unknown]
  - Emotional disorder [Unknown]

NARRATIVE: CASE EVENT DATE: 201805
